FAERS Safety Report 8423032-5 (Version None)
Quarter: 2012Q2

REPORT INFORMATION
  Report Type: 
  Country: None (occurrence: None)
  Receive Date: 20120608
  Receipt Date: 20120605
  Transmission Date: 20120825
  Serious: Yes (Hospitalization, Other)
  Sender: FDA-Public Use
  Company Number: PHHY2012BR048890

PATIENT
  Sex: Male

DRUGS (3)
  1. TRILEPTAL [Suspect]
  2. ONBREZ [Suspect]
  3. ONBREZ [Suspect]
     Dosage: 1 DF, BID

REACTIONS (3)
  - DRUG PRESCRIBING ERROR [None]
  - LUNG DISORDER [None]
  - CEREBRAL THROMBOSIS [None]
